FAERS Safety Report 15136760 (Version 4)
Quarter: 2018Q3

REPORT INFORMATION
  Report Type: Spontaneous
  Country: DE (occurrence: DE)
  Receive Date: 20180712
  Receipt Date: 20180831
  Transmission Date: 20181010
  Serious: Yes (Hospitalization, Other)
  Sender: FDA-Public Use
  Company Number: DE-OTSUKA-2018_009663

PATIENT
  Age: 37 Year
  Sex: Female

DRUGS (19)
  1. RISPERIDONE. [Interacting]
     Active Substance: RISPERIDONE
     Indication: DELIRIUM
     Dosage: 0.5 MG, UNK (FOR 10 DAYS)
     Route: 048
  2. RISPERIDONE. [Interacting]
     Active Substance: RISPERIDONE
     Indication: NEGATIVE THOUGHTS
  3. PROMETHAZINE [Concomitant]
     Active Substance: PROMETHAZINE\PROMETHAZINE HYDROCHLORIDE
     Indication: PRODUCT USED FOR UNKNOWN INDICATION
     Dosage: UNK
     Route: 065
  4. ATORVASTATIN [Concomitant]
     Active Substance: ATORVASTATIN
     Indication: HYPERLIPIDAEMIA
     Dosage: UNK
     Route: 065
  5. PREGABALIN. [Interacting]
     Active Substance: PREGABALIN
     Indication: GENERALISED ANXIETY DISORDER
  6. RISPERIDONE. [Interacting]
     Active Substance: RISPERIDONE
     Indication: MERYCISM
  7. ESCITALOPRAM OXALATE. [Interacting]
     Active Substance: ESCITALOPRAM OXALATE
     Indication: GENERALISED ANXIETY DISORDER
     Dosage: 20 MG, QD (IN A MORNING TARGET DOSE OF 20 MG)
     Route: 065
  8. ESCITALOPRAM OXALATE. [Interacting]
     Active Substance: ESCITALOPRAM OXALATE
     Indication: DEPRESSED MOOD
  9. PREGABALIN. [Interacting]
     Active Substance: PREGABALIN
     Indication: PANIC DISORDER
     Dosage: 100 MG, QD (EVENING DOSE OF 100 MG)
     Route: 048
  10. ARIPIPRAZOLE. [Interacting]
     Active Substance: ARIPIPRAZOLE
     Indication: DEPRESSION
  11. LORAZEPAM. [Concomitant]
     Active Substance: LORAZEPAM
     Indication: PRODUCT USED FOR UNKNOWN INDICATION
     Dosage: UNK (IN CRISIS SITUATIONS WITH TEMPORARY EFFECT )
     Route: 065
  12. ARIPIPRAZOLE. [Suspect]
     Active Substance: ARIPIPRAZOLE
     Indication: NEGATIVE THOUGHTS
     Dosage: 5 MG, QD
     Route: 065
  13. RISPERIDONE. [Interacting]
     Active Substance: RISPERIDONE
     Indication: MENTAL DISORDER
  14. ESCITALOPRAM OXALATE. [Interacting]
     Active Substance: ESCITALOPRAM OXALATE
     Indication: PANIC DISORDER
     Dosage: 15 MG, QD (REDUCED TO 15 MG/DAY)
     Route: 065
  15. ESCITALOPRAM OXALATE. [Interacting]
     Active Substance: ESCITALOPRAM OXALATE
     Indication: DEPRESSION
     Dosage: 20 MG, QD
     Route: 048
  16. PREGABALIN. [Interacting]
     Active Substance: PREGABALIN
     Indication: DEPRESSION
  17. RISPERIDONE. [Interacting]
     Active Substance: RISPERIDONE
     Indication: CONDUCT DISORDER
  18. RISPERIDONE. [Interacting]
     Active Substance: RISPERIDONE
     Indication: DEPRESSION
  19. OPIPRAMOL [Concomitant]
     Active Substance: OPIPRAMOL
     Indication: PRODUCT USED FOR UNKNOWN INDICATION
     Dosage: UNK (IN CRISIS SITUATIONS WITH TEMPORARY EFFECT)
     Route: 065

REACTIONS (13)
  - Restlessness [Unknown]
  - Delirium [Unknown]
  - Drug interaction [Unknown]
  - Sleep disorder [Unknown]
  - Haematoma [Recovered/Resolved]
  - Menorrhagia [Recovered/Resolved]
  - Respiratory tract infection [Unknown]
  - Product use in unapproved indication [Unknown]
  - Condition aggravated [Recovered/Resolved]
  - Insomnia [Unknown]
  - Drug ineffective [Unknown]
  - Haemorrhage [Recovered/Resolved]
  - Thinking abnormal [Unknown]
